FAERS Safety Report 4376024-X (Version None)
Quarter: 2004Q2

REPORT INFORMATION
  Report Type: 
  Country: None (occurrence: None)
  Receive Date: 20040609
  Receipt Date: 20040609
  Transmission Date: 20050107
  Serious: Yes (Hospitalization)
  Sender: FDA-Public Use
  Company Number: None

PATIENT
  Age: 48 Year
  Sex: Male
  Weight: 87 kg

DRUGS (10)
  1. WARFARIN SODIUM [Suspect]
     Indication: ANTICOAGULANT THERAPY
     Dosage: DAILY PO
     Route: 048
     Dates: start: 20040101, end: 20040317
  2. WARFARIN SODIUM [Suspect]
     Indication: DEEP VEIN THROMBOSIS
     Dosage: DAILY PO
     Route: 048
     Dates: start: 20040101, end: 20040317
  3. BACTRIM [Concomitant]
  4. LABETALOL HCL [Concomitant]
  5. LOSARTAN POTASSIUM [Concomitant]
  6. DOXAZOSIN [Concomitant]
  7. FUROSEMIDE [Concomitant]
  8. TACROLIMUS [Concomitant]
  9. PREDNISONE [Concomitant]
  10. MULTI-VITAMINS [Concomitant]

REACTIONS (2)
  - GASTROINTESTINAL HAEMORRHAGE [None]
  - NEOPLASM [None]
